FAERS Safety Report 24865462 (Version 1)
Quarter: 2025Q1

REPORT INFORMATION
  Report Type: Spontaneous
  Country: TW (occurrence: TW)
  Receive Date: 20250121
  Receipt Date: 20250121
  Transmission Date: 20250409
  Serious: Yes (Life-Threatening, Hospitalization, Other)
  Sender: NOVITIUM PHARMA
  Company Number: TW-NOVITIUMPHARMA-2025TWNVP00117

PATIENT
  Age: 68 Year
  Sex: Male

DRUGS (14)
  1. PREDNISONE [Suspect]
     Active Substance: PREDNISONE
     Indication: Follicular lymphoma
     Dates: start: 20210625, end: 20210626
  2. PREDNISONE [Suspect]
     Active Substance: PREDNISONE
     Dates: start: 20210722, end: 20210723
  3. PREDNISONE [Suspect]
     Active Substance: PREDNISONE
     Dates: start: 20210813, end: 20210814
  4. CYCLOPHOSPHAMIDE [Concomitant]
     Active Substance: CYCLOPHOSPHAMIDE
     Indication: Follicular lymphoma
     Dates: start: 20210625, end: 20210626
  5. CYCLOPHOSPHAMIDE [Concomitant]
     Active Substance: CYCLOPHOSPHAMIDE
     Dates: start: 20210722, end: 20210723
  6. CYCLOPHOSPHAMIDE [Concomitant]
     Active Substance: CYCLOPHOSPHAMIDE
     Dates: start: 20210813, end: 20210814
  7. RITUXIMAB [Concomitant]
     Active Substance: RITUXIMAB
     Indication: Follicular lymphoma
     Dates: start: 20210625, end: 20210626
  8. RITUXIMAB [Concomitant]
     Active Substance: RITUXIMAB
     Dates: start: 20210722, end: 20210723
  9. RITUXIMAB [Concomitant]
     Active Substance: RITUXIMAB
     Dates: start: 20210813, end: 20210814
  10. VINCRISTINE [Concomitant]
     Active Substance: VINCRISTINE
     Indication: Follicular lymphoma
     Dates: start: 20210625, end: 20210626
  11. VINCRISTINE [Concomitant]
     Active Substance: VINCRISTINE
     Dates: start: 20210722, end: 20210723
  12. VINCRISTINE [Concomitant]
     Active Substance: VINCRISTINE
     Dates: start: 20210813, end: 20210814
  13. TENOFOVIR DISOPROXIL FUMARATE [Concomitant]
     Active Substance: TENOFOVIR DISOPROXIL FUMARATE
     Indication: Hepatitis B
  14. LEVOFLOXACIN [Concomitant]
     Active Substance: LEVOFLOXACIN
     Indication: Product used for unknown indication

REACTIONS (2)
  - Pneumocystis jirovecii pneumonia [Recovering/Resolving]
  - Pneumonia cytomegaloviral [Recovering/Resolving]
